FAERS Safety Report 13421802 (Version 3)
Quarter: 2017Q2

REPORT INFORMATION
  Report Type: Spontaneous
  Country: US (occurrence: US)
  Receive Date: 20170410
  Receipt Date: 20170501
  Transmission Date: 20170830
  Serious: Yes (Other)
  Sender: FDA-Public Use
  Company Number: US-SUN PHARMACEUTICAL INDUSTRIES LTD-2017US-137513

PATIENT
  Sex: Female

DRUGS (4)
  1. PROGESTERONE. [Suspect]
     Active Substance: PROGESTERONE
     Indication: RISK OF FUTURE PREGNANCY MISCARRIAGE
     Dosage: HIGH-DOSE
     Route: 065
  2. ONDANSETRON [Suspect]
     Active Substance: ONDANSETRON
     Indication: VOMITING
     Dosage: UNK
     Route: 065
  3. SERTRALINE [Suspect]
     Active Substance: SERTRALINE HYDROCHLORIDE
     Indication: DEPRESSION
     Dosage: FOR THE INITIAL TWO TRIMESTER
     Route: 065
  4. ESCITALOPRAM [Suspect]
     Active Substance: ESCITALOPRAM OXALATE
     Indication: DEPRESSION
     Dosage: FOR THE FINAL TRIMESTER
     Route: 065

REACTIONS (3)
  - Maternal exposure during pregnancy [Unknown]
  - Hypersensitivity [Unknown]
  - Human herpesvirus 6 infection [Unknown]
